FAERS Safety Report 7282412-4 (Version None)
Quarter: 2011Q1

REPORT INFORMATION
  Report Type: 
  Country: None (occurrence: None)
  Receive Date: 20110209
  Receipt Date: 20110202
  Transmission Date: 20110831
  Serious: Yes (Disabling)
  Sender: FDA-Public Use
  Company Number: FR-ASTELLAS-2011EU000618

PATIENT
  Age: 40 Year
  Sex: Female

DRUGS (1)
  1. VESICARE [Suspect]
     Dosage: 5 MG, UNKNOWN/D
     Route: 065

REACTIONS (5)
  - DRY MOUTH [None]
  - DRY EYE [None]
  - CONSTIPATION [None]
  - FATIGUE [None]
  - VISUAL IMPAIRMENT [None]
